FAERS Safety Report 20341071 (Version 1)
Quarter: 2022Q1

REPORT INFORMATION
  Report Type: Spontaneous
  Country: PT (occurrence: None)
  Receive Date: 20220117
  Receipt Date: 20220117
  Transmission Date: 20220424
  Serious: Yes (Other)
  Sender: FDA-Public Use
  Company Number: PT-Hikma Pharmaceuticals USA Inc.-PT-H14001-22-00077

PATIENT
  Age: 65 Year
  Sex: Female

DRUGS (3)
  1. GEMCITABINE [Suspect]
     Active Substance: GEMCITABINE
     Indication: Leiomyosarcoma
     Dosage: UNKNOWN
     Route: 065
  2. DOCETAXEL [Suspect]
     Active Substance: DOCETAXEL
     Indication: Leiomyosarcoma
     Dosage: UNKNOWN
     Route: 065
  3. DOXORUBICIN [Concomitant]
     Active Substance: DOXORUBICIN
     Indication: Leiomyosarcoma
     Dosage: UNKNOWN
     Route: 065

REACTIONS (4)
  - Off label use [Unknown]
  - Pancytopenia [Unknown]
  - Hepatic failure [Unknown]
  - Renal failure [Unknown]
